FAERS Safety Report 8529971-9 (Version None)
Quarter: 2012Q3

REPORT INFORMATION
  Report Type: 
  Country: None (occurrence: None)
  Receive Date: 20120723
  Receipt Date: 20120714
  Transmission Date: 20120928
  Serious: Yes (Other)
  Sender: FDA-Public Use
  Company Number: PHHY2012PL060313

PATIENT
  Age: 72 Year
  Sex: Male

DRUGS (5)
  1. METOPROLOL SUCCINATE [Concomitant]
     Indication: HYPERTENSION
  2. RAMIPRIL [Concomitant]
     Indication: HYPERTENSION
  3. NILOTINIB [Suspect]
     Indication: CHRONIC MYELOID LEUKAEMIA
     Dosage: 800 MG, DAILY
     Route: 048
  4. NILOTINIB [Suspect]
     Dosage: 400 MG, DAILY
     Route: 048
  5. AMLODIPINE [Concomitant]
     Indication: HYPERTENSION

REACTIONS (6)
  - PANCYTOPENIA [None]
  - PULMONARY ARTERIAL PRESSURE INCREASED [None]
  - DYSPNOEA EXERTIONAL [None]
  - DILATATION VENTRICULAR [None]
  - BRAIN NATRIURETIC PEPTIDE INCREASED [None]
  - TRICUSPID VALVE INCOMPETENCE [None]
